FAERS Safety Report 14914606 (Version 1)
Quarter: 2018Q2

REPORT INFORMATION
  Report Type: Spontaneous
  Country: US (occurrence: US)
  Receive Date: 20180501
  Receipt Date: 20180501
  Transmission Date: 20180711
  Serious: No
  Sender: FDA-Public Use
  Company Number: None

PATIENT
  Age: 54 Year
  Sex: Female
  Weight: 53.52 kg

DRUGS (7)
  1. VITAMIN D [Suspect]
     Active Substance: CHOLECALCIFEROL
  2. CALCIUM [Concomitant]
     Active Substance: CALCIUM
  3. ESTRACE [Concomitant]
     Active Substance: ESTRADIOL
  4. MAGNESIUM [Concomitant]
     Active Substance: MAGNESIUM
  5. FORTEO [Suspect]
     Active Substance: TERIPARATIDE
  6. ZINC. [Concomitant]
     Active Substance: ZINC
  7. VITAMIN K [Concomitant]
     Active Substance: PHYTONADIONE

REACTIONS (2)
  - Cough [None]
  - Pneumonitis [None]

NARRATIVE: CASE EVENT DATE: 20180407
